FAERS Safety Report 7760256-4 (Version None)
Quarter: 2011Q3

REPORT INFORMATION
  Report Type: 
  Country: None (occurrence: None)
  Receive Date: 20110919
  Receipt Date: 20110909
  Transmission Date: 20111222
  Serious: Yes (Hospitalization)
  Sender: FDA-Public Use
  Company Number: FR-GLAXOSMITHKLINE-B0746099A

PATIENT
  Sex: Male

DRUGS (9)
  1. LIPANOR [Concomitant]
     Dosage: 100MG PER DAY
  2. SPAGULAX [Concomitant]
  3. VELCADE [Suspect]
     Indication: PROPHYLAXIS
     Dosage: 4INJ CUMULATIVE DOSE
     Route: 065
     Dates: start: 20110617, end: 20110627
  4. BACTRIM DS [Suspect]
     Indication: PROPHYLAXIS
     Dosage: 1TAB THREE TIMES PER WEEK
     Route: 048
     Dates: start: 20110620, end: 20110702
  5. ENALAPRIL MALEATE [Concomitant]
     Dosage: 20MG PER DAY
  6. PREVISCAN [Concomitant]
     Dosage: 15MG PER DAY
  7. DEXAMETHASONE [Suspect]
     Indication: MULTIPLE MYELOMA
     Dosage: 4INJ CUMULATIVE DOSE
     Route: 042
     Dates: start: 20110617, end: 20110627
  8. ACETAMINOPHEN [Concomitant]
  9. VALACYCLOVIR HYDROCHLORIDE [Suspect]
     Indication: PROPHYLAXIS
     Dosage: 500MG PER DAY
     Route: 048
     Dates: start: 20110620, end: 20110701

REACTIONS (1)
  - DRUG RASH WITH EOSINOPHILIA AND SYSTEMIC SYMPTOMS [None]
